FAERS Safety Report 17769533 (Version 1)
Quarter: 2020Q2

REPORT INFORMATION
  Report Type: Spontaneous
  Country: US (occurrence: US)
  Receive Date: 20200512
  Receipt Date: 20200512
  Transmission Date: 20200714
  Serious: No
  Sender: FDA-Public Use
  Company Number: US-JNJFOC-20200511721

PATIENT
  Age: 72 Year
  Sex: Male
  Weight: 58.11 kg

DRUGS (1)
  1. XARELTO [Suspect]
     Active Substance: RIVAROXABAN
     Indication: PRODUCT USED FOR UNKNOWN INDICATION
     Route: 048
     Dates: start: 20200507

REACTIONS (2)
  - Dry mouth [Unknown]
  - Feeling hot [Unknown]

NARRATIVE: CASE EVENT DATE: 20200507
